FAERS Safety Report 4467711-3 (Version None)
Quarter: 2004Q4

REPORT INFORMATION
  Report Type: 
  Country: None (occurrence: None)
  Receive Date: 20041007
  Receipt Date: 20040930
  Transmission Date: 20050328
  Serious: Yes (Hospitalization)
  Sender: FDA-Public Use
  Company Number: US-JNJFOC-20041000353

PATIENT
  Sex: Female

DRUGS (4)
  1. INFLIXIMAB [Suspect]
     Indication: RHEUMATOID ARTHRITIS
     Route: 042
  2. METHOTREXATE [Concomitant]
  3. FOLIC ACID [Concomitant]
  4. EVISTA [Concomitant]

REACTIONS (7)
  - ABDOMINAL PAIN LOWER [None]
  - CONSTIPATION [None]
  - HAEMATOCRIT DECREASED [None]
  - NAUSEA [None]
  - VAGINAL HYSTERECTOMY [None]
  - VOMITING [None]
  - WHITE BLOOD CELL COUNT INCREASED [None]
